FAERS Safety Report 5472669-4 (Version None)
Quarter: 2007Q4

REPORT INFORMATION
  Report Type: 
  Country: None (occurrence: None)
  Receive Date: 20071001
  Receipt Date: 20060825
  Transmission Date: 20080405
  Serious: No
  Sender: FDA-Public Use
  Company Number: US-ASTRAZENECA-2006UW16899

PATIENT
  Age: 65 Year
  Sex: Female
  Weight: 65.8 kg

DRUGS (3)
  1. ARIMIDEX [Suspect]
     Indication: BREAST CANCER FEMALE
     Route: 048
     Dates: start: 20060601
  2. ATENOLOL [Concomitant]
     Route: 048
  3. ALPHAGAN [Concomitant]

REACTIONS (5)
  - ARTHROPATHY [None]
  - FATIGUE [None]
  - MOOD ALTERED [None]
  - PARAESTHESIA [None]
  - SEXUAL DYSFUNCTION [None]
